FAERS Safety Report 16409305 (Version 1)
Quarter: 2019Q2

REPORT INFORMATION
  Report Type: Spontaneous
  Country: None (occurrence: US)
  Receive Date: 20190610
  Receipt Date: 20190610
  Transmission Date: 20190711
  Serious: No
  Sender: FDA-Public Use
  Company Number: US-TECHNOMED INC.-2067978

PATIENT
  Sex: Male

DRUGS (4)
  1. GABAPENTIN. [Concomitant]
     Active Substance: GABAPENTIN
     Route: 065
  2. CATAPRES-TTS [Suspect]
     Active Substance: CLONIDINE
     Indication: NEURALGIA
     Route: 061
     Dates: start: 2018, end: 201905
  3. CLONIDINE. [Concomitant]
     Active Substance: CLONIDINE
     Route: 048
  4. BUTRAN PATCH (BUPRENORPHINE) [Concomitant]

REACTIONS (2)
  - Off label use [Unknown]
  - Application site erythema [Not Recovered/Not Resolved]
